FAERS Safety Report 8515157-0 (Version None)
Quarter: 2012Q3

REPORT INFORMATION
  Report Type: 
  Country: None (occurrence: None)
  Receive Date: 20120717
  Receipt Date: 20120711
  Transmission Date: 20120928
  Serious: Yes (Hospitalization)
  Sender: FDA-Public Use
  Company Number: US-GLAXOSMITHKLINE-A0961421A

PATIENT
  Age: 23 Year
  Sex: Female
  Weight: 125 kg

DRUGS (11)
  1. VIMPAT [Suspect]
     Dosage: 100MG TWICE PER DAY
     Route: 048
  2. LAMICTAL [Suspect]
     Indication: CONVULSION
     Dosage: 200MG TWICE PER DAY
     Route: 048
  3. NASONEX [Concomitant]
  4. XANAX [Concomitant]
  5. SUDAFED 12 HOUR [Concomitant]
  6. JANUMET [Concomitant]
     Dosage: 1TAB TWICE PER DAY
  7. MAXALT [Concomitant]
     Indication: HEADACHE
  8. TRILIPIX [Concomitant]
  9. MIRALAX [Concomitant]
  10. ACTOS [Concomitant]
     Dosage: 30MG PER DAY
  11. HYDROCHLOROTHIAZIDE [Concomitant]

REACTIONS (11)
  - CONFUSIONAL STATE [None]
  - APHASIA [None]
  - SPEECH DISORDER [None]
  - GRAND MAL CONVULSION [None]
  - PRODUCT QUALITY ISSUE [None]
  - CONVULSION [None]
  - ANXIETY [None]
  - DRUG LEVEL DECREASED [None]
  - RESPIRATORY ARREST [None]
  - BALANCE DISORDER [None]
  - MENTAL IMPAIRMENT [None]
